FAERS Safety Report 8806870 (Version 1)
Quarter: 2012Q4

REPORT INFORMATION
  Report Type: 
  Country: US (occurrence: US)
  Receive Date: 20120925
  Receipt Date: 20120925
  Transmission Date: 20130627
  Serious: Yes (Death)
  Sender: FDA-Public Use
  Company Number: US-ROCHE-1126597

PATIENT
  Sex: Male

DRUGS (1)
  1. AVASTIN [Suspect]
     Indication: RENAL CANCER
     Route: 065
     Dates: end: 20070809

REACTIONS (4)
  - Death [Fatal]
  - Insomnia [Unknown]
  - Nasal congestion [Unknown]
  - Upper-airway cough syndrome [Unknown]
